FAERS Safety Report 13011401 (Version 1)
Quarter: 2016Q4

REPORT INFORMATION
  Report Type: Spontaneous
  Country: FR (occurrence: FR)
  Receive Date: 20161209
  Receipt Date: 20161209
  Transmission Date: 20170207
  Serious: Yes (Hospitalization)
  Sender: FDA-Public Use
  Company Number: FR-ROCHE-1864884

PATIENT
  Age: 8 Year
  Sex: Female
  Weight: 18 kg

DRUGS (6)
  1. MICROPAKINE [Suspect]
     Active Substance: VALPROIC ACID
     Indication: PRODUCT USED FOR UNKNOWN INDICATION
     Route: 048
     Dates: end: 20161118
  2. VALIUM [Suspect]
     Active Substance: DIAZEPAM
     Indication: PRODUCT USED FOR UNKNOWN INDICATION
     Route: 048
     Dates: end: 20161119
  3. EPITOMAX [Concomitant]
     Active Substance: TOPIRAMATE
     Route: 065
     Dates: start: 20161121
  4. PANTOPRAZOLE [Concomitant]
     Active Substance: PANTOPRAZOLE SODIUM
  5. FERROSTRANE [Concomitant]
     Active Substance: SODIUM FEREDETATE
  6. LAMICTAL [Suspect]
     Active Substance: LAMOTRIGINE
     Indication: INFANTILE SPASMS
     Route: 048

REACTIONS (3)
  - Off label use [Unknown]
  - Pancreatitis acute [Recovered/Resolved]
  - Product use issue [Unknown]

NARRATIVE: CASE EVENT DATE: 20161115
